FAERS Safety Report 6755908-9 (Version None)
Quarter: 2010Q2

REPORT INFORMATION
  Report Type: 
  Country: None (occurrence: None)
  Receive Date: 20100604
  Receipt Date: 20100527
  Transmission Date: 20101027
  Serious: Yes (Hospitalization, Other)
  Sender: FDA-Public Use
  Company Number: JP-BRISTOL-MYERS SQUIBB COMPANY-15130875

PATIENT
  Age: 78 Year
  Sex: Male

DRUGS (4)
  1. AVAPRO [Suspect]
     Indication: HYPERTENSION
     Dates: start: 20100422
  2. AMLODIPINE [Concomitant]
  3. RASTINON [Concomitant]
     Dosage: HOECHST RASTINON
  4. ACTON [Concomitant]

REACTIONS (4)
  - OEDEMA [None]
  - PLEURAL EFFUSION [None]
  - RENAL IMPAIRMENT [None]
  - URINARY RETENTION [None]
